FAERS Safety Report 17454741 (Version 2)
Quarter: 2020Q1

REPORT INFORMATION
  Report Type: Spontaneous
  Country: US (occurrence: US)
  Receive Date: 20200222
  Receipt Date: 20200225
  Transmission Date: 20200409
  Serious: No
  Sender: FDA-Public Use
  Company Number: NVSC2020US049274

PATIENT
  Sex: Female

DRUGS (2)
  1. TASIGNA [Suspect]
     Active Substance: NILOTINIB
     Indication: CHRONIC MYELOID LEUKAEMIA
     Dosage: 200 MG, BID
     Route: 048
  2. TASIGNA [Concomitant]
     Active Substance: NILOTINIB
     Dosage: 200 MG
     Route: 048

REACTIONS (3)
  - Insomnia [Unknown]
  - Ear discomfort [Unknown]
  - Arthralgia [Recovered/Resolved]
